FAERS Safety Report 4914197-8 (Version None)
Quarter: 2006Q1

REPORT INFORMATION
  Report Type: 
  Country: None (occurrence: None)
  Receive Date: 20060213
  Receipt Date: 20060202
  Transmission Date: 20060701
  Serious: Yes (Disabling)
  Sender: FDA-Public Use
  Company Number: NL-GDP-0612704

PATIENT
  Age: 28 Year
  Sex: Male

DRUGS (7)
  1. CLOBEX [Suspect]
     Indication: ECZEMA
  2. DEXAMETHASONE [Suspect]
     Indication: ERYTHEMA OF EYELID
  3. DEXAMETHASONE [Suspect]
     Indication: EYELID OEDEMA
  4. DEXAMETHASONE [Suspect]
     Indication: PRURITUS
  5. GENTAMICIN [Suspect]
     Indication: PRURITUS
  6. BETAMETHASONE [Suspect]
     Indication: ECZEMA
  7. MOMETASON [Suspect]
     Indication: ECZEMA

REACTIONS (8)
  - BLEPHARITIS [None]
  - DRUG INEFFECTIVE [None]
  - ENDOPHTHALMITIS [None]
  - EYE DISORDER [None]
  - EYE INFECTION STAPHYLOCOCCAL [None]
  - GLAUCOMA [None]
  - SCOTOMA [None]
  - VISUAL ACUITY REDUCED [None]
